FAERS Safety Report 6214583-2 (Version None)
Quarter: 2009Q2

REPORT INFORMATION
  Report Type: 
  Country: None (occurrence: None)
  Receive Date: 20090604
  Receipt Date: 20090527
  Transmission Date: 20091009
  Serious: Yes (Other)
  Sender: FDA-Public Use
  Company Number: FR-ASTRAZENECA-2009CG00816

PATIENT
  Sex: Male
  Weight: 91 kg

DRUGS (4)
  1. ATACAND [Suspect]
     Route: 048
     Dates: start: 20010410, end: 20060504
  2. ATACAND [Suspect]
     Route: 048
     Dates: start: 20060505, end: 20070723
  3. DETENSIEL [Concomitant]
     Indication: HYPERTENSION
     Dates: start: 19970612, end: 20060203
  4. ISOPTIN [Concomitant]
     Indication: HYPERTENSION
     Dates: start: 20060203

REACTIONS (1)
  - GOUT [None]
